FAERS Safety Report 5064182-3 (Version None)
Quarter: 2006Q3

REPORT INFORMATION
  Report Type: 
  Country: None (occurrence: None)
  Receive Date: 20060728
  Receipt Date: 20060420
  Transmission Date: 20061208
  Serious: No
  Sender: FDA-Public Use
  Company Number: US-GLAXOSMITHKLINE-A0602651A

PATIENT
  Age: 9 Week
  Sex: Male

DRUGS (2)
  1. ZANTAC [Suspect]
     Dosage: .5TSP TWICE PER DAY
     Route: 048
     Dates: start: 20060330
  2. REGLAN [Concomitant]

REACTIONS (7)
  - CRYING [None]
  - DIZZINESS [None]
  - DRUG INEFFECTIVE [None]
  - INSOMNIA [None]
  - IRRITABILITY [None]
  - MEDICATION ERROR [None]
  - VOMITING [None]
